FAERS Safety Report 23612915 (Version 2)
Quarter: 2024Q2

REPORT INFORMATION
  Report Type: Spontaneous
  Country: US (occurrence: US)
  Receive Date: 20240308
  Receipt Date: 20240520
  Transmission Date: 20240716
  Serious: No
  Sender: FDA-Public Use
  Company Number: US-BAUSCHBL-2024BNL002811

PATIENT
  Sex: Female

DRUGS (2)
  1. XIIDRA [Suspect]
     Active Substance: LIFITEGRAST
     Indication: Product used for unknown indication
     Route: 065
  2. MIEBO [Suspect]
     Active Substance: PERFLUOROHEXYLOCTANE
     Indication: Product used for unknown indication
     Route: 065

REACTIONS (6)
  - Pain in extremity [Unknown]
  - Product use complaint [Unknown]
  - Accidental exposure to product [Unknown]
  - Exposure via skin contact [Unknown]
  - Product container issue [Unknown]
  - Inability to afford medication [Unknown]
